FAERS Safety Report 7901102-5 (Version None)
Quarter: 2011Q4

REPORT INFORMATION
  Report Type: 
  Country: None (occurrence: None)
  Receive Date: 20111108
  Receipt Date: 20111101
  Transmission Date: 20120403
  Serious: Yes (Death, Life-Threatening)
  Sender: FDA-Public Use
  Company Number: CZ-CELGENEUS-217-C5013-11021593

PATIENT
  Age: 77 Year
  Sex: Female

DRUGS (24)
  1. RAMIPRIL [Concomitant]
     Route: 048
     Dates: start: 20080723
  2. NEUPOGEN [Concomitant]
     Route: 058
     Dates: start: 20090128, end: 20090130
  3. GANATON [Concomitant]
     Indication: CONSTIPATION
     Route: 048
     Dates: start: 20080910
  4. LOREM [Concomitant]
     Route: 048
     Dates: start: 20080910
  5. METOPROLOL TARTRATE [Concomitant]
     Route: 048
     Dates: start: 20040101
  6. NEUPOGEN [Concomitant]
     Route: 058
     Dates: start: 20091223, end: 20100203
  7. OMEPRAZOLE [Concomitant]
     Indication: PROPHYLAXIS
     Route: 048
     Dates: start: 20050501
  8. PANGDOL [Concomitant]
     Indication: CONSTIPATION
     Route: 048
     Dates: start: 20081006
  9. COXTRAL [Concomitant]
     Indication: BONE PAIN
     Route: 048
     Dates: start: 20080609
  10. MELPHALAN HYDROCHLORIDE [Suspect]
     Indication: MULTIPLE MYELOMA
     Route: 065
     Dates: start: 20080709, end: 20090221
  11. LENALIDOMIDE [Suspect]
     Indication: MULTIPLE MYELOMA
     Route: 048
     Dates: start: 20080709, end: 20091115
  12. THEOPHYLLINE [Concomitant]
     Route: 048
  13. DIGOXIN [Concomitant]
     Route: 048
     Dates: start: 19750101
  14. FLUTICASONE PROPIONATE/SALMETEROL [Concomitant]
     Route: 055
     Dates: start: 20050101
  15. LENALIDOMIDE [Suspect]
     Indication: MULTIPLE MYELOMA
     Route: 048
     Dates: start: 20091125, end: 20100112
  16. ZOLPIDEM [Concomitant]
     Indication: INSOMNIA
     Route: 048
     Dates: start: 20080929
  17. ZOMETA [Concomitant]
     Route: 048
     Dates: start: 20080101, end: 20100217
  18. GODASAL [Concomitant]
     Indication: THROMBOSIS PROPHYLAXIS
     Route: 048
     Dates: start: 20080716
  19. FLONDAN [Concomitant]
     Route: 048
     Dates: start: 20080901
  20. ARANESP [Concomitant]
     Indication: ANAEMIA
     Route: 058
     Dates: start: 20091224
  21. PREDNISONE [Suspect]
     Indication: MULTIPLE MYELOMA
     Route: 065
     Dates: start: 20080709, end: 20090221
  22. LETROX [Concomitant]
     Indication: HYPOTHYROIDISM
     Route: 048
  23. NEUPOGEN [Concomitant]
     Indication: NEUTROPENIA
     Route: 058
     Dates: start: 20081203, end: 20081207
  24. NEUPOGEN [Concomitant]
     Route: 058
     Dates: start: 20100217

REACTIONS (2)
  - SEPSIS [None]
  - MYELODYSPLASTIC SYNDROME [None]
